FAERS Safety Report 5312643-1 (Version None)
Quarter: 2007Q2

REPORT INFORMATION
  Report Type: 
  Country: None (occurrence: None)
  Receive Date: 20070430
  Receipt Date: 20070205
  Transmission Date: 20071010
  Serious: No
  Sender: FDA-Public Use
  Company Number: 2007UW02379

PATIENT
  Age: 76 Year
  Sex: Female
  Weight: 67.1 kg

DRUGS (5)
  1. NEXIUM [Suspect]
     Indication: GASTROOESOPHAGEAL REFLUX DISEASE
     Route: 048
     Dates: start: 20050101
  2. COUMADIN [Concomitant]
  3. XANAX [Concomitant]
  4. VYTORIN [Concomitant]
  5. TYLENOL [Concomitant]

REACTIONS (2)
  - HAEMATEMESIS [None]
  - RASH [None]
